FAERS Safety Report 6632110-2 (Version None)
Quarter: 2010Q1

REPORT INFORMATION
  Report Type: 
  Country: None (occurrence: None)
  Receive Date: 20100312
  Receipt Date: 20100308
  Transmission Date: 20100710
  Serious: Yes (Hospitalization)
  Sender: FDA-Public Use
  Company Number: FR-BAXTER-2010BH006458

PATIENT
  Age: 50 Year
  Sex: Male

DRUGS (4)
  1. ENDOXAN BAXTER [Suspect]
     Indication: DRUG USE FOR UNKNOWN INDICATION
     Route: 042
     Dates: start: 20091127, end: 20091127
  2. ENDOXAN BAXTER [Suspect]
     Route: 042
     Dates: start: 20091211, end: 20091211
  3. UROMITEXAN BAXTER [Suspect]
     Indication: DRUG USE FOR UNKNOWN INDICATION
     Route: 042
     Dates: start: 20091127, end: 20091127
  4. UROMITEXAN BAXTER [Suspect]
     Route: 042
     Dates: start: 20091211, end: 20091211

REACTIONS (1)
  - RENAL FAILURE [None]
